FAERS Safety Report 8609197-0 (Version None)
Quarter: 2012Q3

REPORT INFORMATION
  Report Type: 
  Country: None (occurrence: None)
  Receive Date: 20120821
  Receipt Date: 20120817
  Transmission Date: 20120928
  Serious: Yes (Death)
  Sender: FDA-Public Use
  Company Number: US-CELGENEUS-163-21880-12080113

PATIENT
  Sex: Male

DRUGS (2)
  1. REVLIMID [Suspect]
     Indication: MULTIPLE MYELOMA
     Dosage: 20 MILLIGRAM
     Route: 048
     Dates: start: 20120501, end: 20120101
  2. REVLIMID [Suspect]
     Indication: NON-HODGKIN'S LYMPHOMA

REACTIONS (2)
  - SEPSIS [None]
  - CARDIAC DISORDER [None]
